FAERS Safety Report 4524856-7 (Version None)
Quarter: 2004Q4

REPORT INFORMATION
  Report Type: 
  Country: None (occurrence: None)
  Receive Date: 20041117
  Receipt Date: 20031204
  Transmission Date: 20050328
  Serious: Yes (Other)
  Sender: FDA-Public Use
  Company Number: C2003-3198.01

PATIENT
  Age: 79 Year
  Sex: Female

DRUGS (9)
  1. CLOZAPINE [Suspect]
     Dosage: 50MG BID, ORAL
     Route: 048
     Dates: end: 20031201
  2. ALBUTEROL [Concomitant]
  3. CALCITRONIN SALMON NASAL SPRAY [Concomitant]
  4. METHYLPHENIDATE [Concomitant]
  5. MULTIVITAMIN WITH MINERALS [Concomitant]
  6. NYSTATIN [Concomitant]
  7. POTASSIUM CHLORIDE [Concomitant]
  8. TRAZODONE HCL [Concomitant]
  9. VENLAFAXINE HCL [Concomitant]

REACTIONS (1)
  - LEUKOPENIA [None]
